FAERS Safety Report 22160381 (Version 4)
Quarter: 2025Q2

REPORT INFORMATION
  Report Type: Spontaneous
  Country: JP (occurrence: JP)
  Receive Date: 20230331
  Receipt Date: 20250611
  Transmission Date: 20250716
  Serious: Yes (Other)
  Sender: LUNDBECK
  Company Number: JP-SA-2023SA095685

PATIENT
  Age: 10 Month
  Sex: Female
  Weight: 8.8 kg

DRUGS (11)
  1. SABRIL [Suspect]
     Active Substance: VIGABATRIN
     Indication: Infantile spasms
     Dosage: 220 MG, BID
     Route: 048
     Dates: start: 20211025, end: 20211227
  2. SABRIL [Suspect]
     Active Substance: VIGABATRIN
     Dosage: 175 MG, BID
     Route: 048
     Dates: start: 20211228, end: 20220216
  3. SABRIL [Suspect]
     Active Substance: VIGABATRIN
     Dosage: 125 MG, BID
     Route: 048
     Dates: start: 20220217, end: 20230125
  4. SABRIL [Suspect]
     Active Substance: VIGABATRIN
     Dosage: 75 MG, BID
     Route: 048
     Dates: start: 20230126, end: 20230509
  5. SABRIL [Suspect]
     Active Substance: VIGABATRIN
     Dosage: 50 MG, BID
     Route: 048
     Dates: start: 20230510, end: 20230621
  6. LACOSAMIDE [Suspect]
     Active Substance: LACOSAMIDE
     Indication: Infantile spasms
     Route: 048
     Dates: start: 20211008, end: 20211010
  7. LACOSAMIDE [Suspect]
     Active Substance: LACOSAMIDE
     Route: 048
     Dates: start: 20211011, end: 20211013
  8. LACOSAMIDE [Suspect]
     Active Substance: LACOSAMIDE
     Route: 048
     Dates: start: 20211014, end: 20211017
  9. LACOSAMIDE [Suspect]
     Active Substance: LACOSAMIDE
     Route: 048
     Dates: start: 20211018, end: 20211019
  10. LACOSAMIDE [Suspect]
     Active Substance: LACOSAMIDE
     Route: 048
     Dates: start: 20211020, end: 20230816
  11. LACOSAMIDE [Suspect]
     Active Substance: LACOSAMIDE
     Route: 048
     Dates: start: 20230817

REACTIONS (3)
  - Increased bronchial secretion [Recovering/Resolving]
  - Somnolence [Recovering/Resolving]
  - Drug ineffective [Unknown]

NARRATIVE: CASE EVENT DATE: 20211026
